FAERS Safety Report 21959500 (Version 1)
Quarter: 2023Q1

REPORT INFORMATION
  Report Type: Report from Study
  Country: US (occurrence: US)
  Receive Date: 20230206
  Receipt Date: 20230206
  Transmission Date: 20230417
  Serious: Yes (Hospitalization, Other)
  Sender: FDA-Public Use
  Company Number: US-BAYER-2023A003295

PATIENT
  Age: 56 Year
  Sex: Female

DRUGS (3)
  1. STIVARGA [Suspect]
     Active Substance: REGORAFENIB
     Indication: Gastrointestinal stromal tumour
     Dosage: 120 MG, QD
     Route: 048
     Dates: start: 20221027
  2. STIVARGA [Suspect]
     Active Substance: REGORAFENIB
     Indication: Connective tissue neoplasm
     Dosage: DAILY DOSE 120 MG FOR 21 DAYS ON, 7 DAYS OFF
     Route: 048
     Dates: start: 20221103
  3. STIVARGA [Suspect]
     Active Substance: REGORAFENIB
     Indication: Soft tissue neoplasm

REACTIONS (7)
  - Wound infection [None]
  - Blood glucose increased [None]
  - Central venous catheterisation [None]
  - Vision blurred [None]
  - Headache [None]
  - Blood pressure increased [None]
  - Off label use [None]

NARRATIVE: CASE EVENT DATE: 20221027
